FAERS Safety Report 12089601 (Version 1)
Quarter: 2016Q1

REPORT INFORMATION
  Report Type: Spontaneous
  Country: US (occurrence: US)
  Receive Date: 20160218
  Receipt Date: 20160218
  Transmission Date: 20160526
  Serious: Yes (Hospitalization)
  Sender: FDA-Public Use
  Company Number: US-TEVA-631296USA

PATIENT
  Age: 75 Year
  Sex: Female

DRUGS (6)
  1. ANASTROZOLE. [Suspect]
     Active Substance: ANASTROZOLE
     Route: 065
     Dates: start: 201411, end: 20150815
  2. KLOR-CON [Concomitant]
     Active Substance: POTASSIUM CHLORIDE
     Dosage: 10 MILLIEQUIVALENTS DAILY;
  3. LOSARTAN /HCTZ [Concomitant]
     Dosage: 100/25
  4. FLOMAX [Concomitant]
     Active Substance: TAMSULOSIN HYDROCHLORIDE
  5. SIMVASTIN [Concomitant]
     Active Substance: SIMVASTATIN
     Dosage: 40 MILLIGRAM DAILY;
  6. LEXAPRO [Concomitant]
     Active Substance: ESCITALOPRAM OXALATE
     Dosage: 40 MILLIGRAM DAILY;

REACTIONS (11)
  - Muscle spasms [Recovering/Resolving]
  - Bladder discomfort [Recovered/Resolved]
  - Decreased interest [Recovered/Resolved]
  - Bone pain [Recovered/Resolved]
  - Pain in extremity [Recovered/Resolved]
  - Musculoskeletal stiffness [Recovering/Resolving]
  - Vision blurred [Recovered/Resolved]
  - Hypoaesthesia [Recovered/Resolved]
  - Fatigue [Recovering/Resolving]
  - Arthralgia [Recovering/Resolving]
  - Arthralgia [Recovered/Resolved]

NARRATIVE: CASE EVENT DATE: 201501
